FAERS Safety Report 7677676-9 (Version None)
Quarter: 2011Q3

REPORT INFORMATION
  Report Type: 
  Country: None (occurrence: None)
  Receive Date: 20110811
  Receipt Date: 20110803
  Transmission Date: 20111222
  Serious: Yes (Hospitalization)
  Sender: FDA-Public Use
  Company Number: PHHO2011US11136

PATIENT
  Sex: Male
  Weight: 69.4 kg

DRUGS (4)
  1. VALCYTE [Suspect]
  2. CERTICAN [Suspect]
     Indication: RENAL TRANSPLANT
     Dosage: 1.5 MG, Q12H
     Dates: start: 20110322
  3. CERTICAN [Suspect]
     Dosage: 0.75 MG, Q12H
     Dates: start: 20110625
  4. PROGRAF [Suspect]
     Indication: RENAL TRANSPLANT

REACTIONS (3)
  - PNEUMONIA [None]
  - ISCHAEMIC HEPATITIS [None]
  - THROMBOCYTOPENIA [None]
